FAERS Safety Report 5003261-3 (Version None)
Quarter: 2006Q2

REPORT INFORMATION
  Report Type: 
  Country: None (occurrence: None)
  Receive Date: 20060516
  Receipt Date: 20060426
  Transmission Date: 20061013
  Serious: Yes (Other)
  Sender: FDA-Public Use
  Company Number: US-AVENTIS-200613849US

PATIENT
  Sex: Female
  Weight: 59 kg

DRUGS (8)
  1. LANTUS [Suspect]
     Indication: DIABETES MELLITUS NON-INSULIN-DEPENDENT
     Dosage: DOSE UNIT: UNITS
     Dates: start: 20030101
  2. LANTUS [Suspect]
     Dosage: DOSE UNIT: UNITS
  3. OPTICLIK (INSULIN INJECTION PEN) [Suspect]
     Dates: start: 20060421, end: 20060421
  4. OPTICLIK (INSULIN INJECTION PEN) [Suspect]
  5. NOVOLOG [Concomitant]
     Dosage: DOSE: UNK
  6. XANAX [Concomitant]
     Dosage: DOSE: UNK
  7. LIPITOR [Concomitant]
     Dosage: DOSE: UNK
  8. LEVOXYL [Concomitant]
     Dosage: DOSE: UNK

REACTIONS (1)
  - VISUAL ACUITY REDUCED [None]
